FAERS Safety Report 10216497 (Version 1)
Quarter: 2014Q2

REPORT INFORMATION
  Report Type: Spontaneous
  Country: US (occurrence: US)
  Receive Date: 20140604
  Receipt Date: 20140604
  Transmission Date: 20141212
  Serious: No
  Sender: FDA-Public Use
  Company Number: US-PFIZER INC-2014149409

PATIENT
  Age: 80 Year
  Sex: Male

DRUGS (9)
  1. CARDURA [Suspect]
     Dosage: UNK
  2. LIPITOR [Suspect]
     Dosage: UNK
     Route: 048
  3. CELEBREX [Suspect]
     Dosage: UNK
     Route: 048
  4. LISINOPRIL [Suspect]
     Dosage: UNK
  5. BUSPIRONE [Suspect]
     Dosage: UNK
  6. NORCO [Suspect]
     Dosage: UNK
  7. PLAVIX [Suspect]
     Dosage: UNK
  8. CARDIZEM [Suspect]
     Dosage: UNK
  9. ASPIRIN [Suspect]
     Dosage: UNK

REACTIONS (1)
  - Drug hypersensitivity [Unknown]
